FAERS Safety Report 5308128-9 (Version None)
Quarter: 2007Q2

REPORT INFORMATION
  Report Type: 
  Country: None (occurrence: None)
  Receive Date: 20070426
  Receipt Date: 20070412
  Transmission Date: 20071010
  Serious: Yes (Other)
  Sender: FDA-Public Use
  Company Number: PHBS2007US06902

PATIENT
  Age: 1 Day

DRUGS (2)
  1. CLOZAPINE [Suspect]
     Dosage: MATERNAL DOSE: 100 MG/D
     Route: 064
  2. RISPERDAL [Suspect]
     Dosage: MATERNAL DOSE 3 MG/D
     Route: 064

REACTIONS (3)
  - CHILLS [None]
  - DRUG EXPOSURE DURING PREGNANCY [None]
  - DRUG WITHDRAWAL SYNDROME NEONATAL [None]
